FAERS Safety Report 9567923 (Version 1)
Quarter: 2013Q3

REPORT INFORMATION
  Report Type: Spontaneous
  Country: US (occurrence: US)
  Receive Date: 20130930
  Receipt Date: 20130930
  Transmission Date: 20140515
  Serious: No
  Sender: FDA-Public Use
  Company Number: US-AMGEN-USASP2013057166

PATIENT
  Age: 56 Year
  Sex: Male
  Weight: 99.77 kg

DRUGS (5)
  1. ENBREL [Suspect]
     Indication: PRODUCT USED FOR UNKNOWN INDICATION
     Dosage: 50 MG, QWK
     Route: 058
  2. JANUMET [Concomitant]
     Dosage: 50-1000
  3. NIASPAN ER [Concomitant]
     Dosage: 1000 UNK, UNK
  4. TRILIPIX [Concomitant]
     Dosage: 135 MG, UNK
  5. ASPIRIN [Concomitant]
     Dosage: 81 MG, UNK

REACTIONS (1)
  - Injection site pain [Unknown]
